FAERS Safety Report 8220103-3 (Version None)
Quarter: 2012Q1

REPORT INFORMATION
  Report Type: 
  Country: None (occurrence: None)
  Receive Date: 20120320
  Receipt Date: 20120312
  Transmission Date: 20120608
  Serious: Yes (Hospitalization)
  Sender: FDA-Public Use
  Company Number: US-BIOGENIDEC-2012BI006775

PATIENT
  Age: 51 Year
  Sex: Female

DRUGS (3)
  1. METFORMIN HYDROCHLORIDE [Concomitant]
     Indication: DIABETES MELLITUS
  2. INSULIN [Concomitant]
     Indication: DIABETES MELLITUS
     Dates: start: 20120203, end: 20120213
  3. AVONEX [Suspect]
     Indication: MULTIPLE SCLEROSIS
     Route: 030
     Dates: start: 20080201

REACTIONS (10)
  - INTERVERTEBRAL DISC DISPLACEMENT [None]
  - FALL [None]
  - CORONARY ARTERY OCCLUSION [None]
  - ELECTROCARDIOGRAM ABNORMAL [None]
  - PROCEDURAL PAIN [None]
  - DRUG HYPERSENSITIVITY [None]
  - ANAEMIA [None]
  - SCAN MYOCARDIAL PERFUSION ABNORMAL [None]
  - NECK PAIN [None]
  - PAIN IN EXTREMITY [None]
